FAERS Safety Report 25079216 (Version 1)
Quarter: 2025Q1

REPORT INFORMATION
  Report Type: Spontaneous
  Country: US (occurrence: US)
  Receive Date: 20250314
  Receipt Date: 20250314
  Transmission Date: 20250409
  Serious: No
  Sender: MYLAN
  Company Number: US-MYLANLABS-2025M1019444

PATIENT
  Sex: Male

DRUGS (1)
  1. TYRVAYA [Suspect]
     Active Substance: VARENICLINE TARTRATE
     Indication: Dry eye

REACTIONS (1)
  - Drug ineffective [Unknown]
